FAERS Safety Report 8268425-4 (Version None)
Quarter: 2012Q2

REPORT INFORMATION
  Report Type: 
  Country: None (occurrence: None)
  Receive Date: 20120409
  Receipt Date: 20120402
  Transmission Date: 20120825
  Serious: No
  Sender: FDA-Public Use
  Company Number: DE-UCBSA-052074

PATIENT
  Age: 80 Year
  Sex: Male
  Weight: 70 kg

DRUGS (4)
  1. MARCUMAR [Concomitant]
     Dosage: DOSE ACCORDING TO INR
     Route: 048
     Dates: start: 20120101
  2. KEPPRA [Suspect]
     Indication: EPILEPSY
     Route: 048
     Dates: start: 20120128, end: 20120209
  3. MARCUMAR [Concomitant]
     Indication: ATRIAL FIBRILLATION
     Dosage: SINGLE DOSE: 3 MG ; NO. OF SINGLE DOSES:1-1?  ; DAILY DOSE:3-4 MG
     Route: 048
     Dates: start: 20000101
  4. ENOXAPARIN SODIUM [Concomitant]
     Indication: ATRIAL FIBRILLATION
     Route: 058
     Dates: start: 20120101, end: 20120209

REACTIONS (6)
  - DEPRESSED MOOD [None]
  - APATHY [None]
  - DEPRESSION [None]
  - DIZZINESS [None]
  - FATIGUE [None]
  - DISTURBANCE IN ATTENTION [None]
